FAERS Safety Report 9830019 (Version 3)
Quarter: 2014Q2

REPORT INFORMATION
  Report Type: Spontaneous
  Country: FR (occurrence: FR)
  Receive Date: 20140120
  Receipt Date: 20140512
  Transmission Date: 20141212
  Serious: Yes (Disabling)
  Sender: FDA-Public Use
  Company Number: FR-ACTELION-A-CH2013-88952

PATIENT
  Age: 80 Year
  Sex: Female
  Weight: 61 kg

DRUGS (16)
  1. TRACLEER [Suspect]
     Indication: SCLERODERMA ASSOCIATED DIGITAL ULCER
     Dosage: 125 MG, BID
     Route: 048
     Dates: start: 20130423, end: 20130715
  2. TRACLEER [Suspect]
     Dosage: 62.5 MG, BID
     Route: 048
     Dates: start: 20130323, end: 20130422
  3. CHRONADALATE [Concomitant]
     Indication: SKIN ULCER
     Dosage: UNK
     Dates: start: 201302
  4. CORTANCYL [Concomitant]
     Indication: POLYARTHRITIS
  5. BARACLUDE [Concomitant]
     Indication: HEPATITIS B
  6. EUPANTOL [Concomitant]
     Indication: GASTROOESOPHAGEAL REFLUX DISEASE
  7. DEROXAT [Concomitant]
     Indication: DEPRESSIVE SYMPTOM
  8. MABTHERA [Concomitant]
  9. VOGALENE [Concomitant]
  10. UVEDOSE [Concomitant]
  11. ALPHA [Concomitant]
  12. ACTONEL [Concomitant]
  13. LASILIX [Concomitant]
  14. IMODIUM [Concomitant]
  15. DUPHALAC [Concomitant]
  16. SPASFON [Concomitant]

REACTIONS (3)
  - Erythema [Recovering/Resolving]
  - Condition aggravated [Recovering/Resolving]
  - Pruritus [Recovered/Resolved]
